FAERS Safety Report 19197904 (Version 3)
Quarter: 2023Q4

REPORT INFORMATION
  Report Type: Spontaneous
  Country: CZ (occurrence: CZ)
  Receive Date: 20210430
  Receipt Date: 20231020
  Transmission Date: 20240110
  Serious: Yes (Death, Other)
  Sender: FDA-Public Use
  Company Number: CZ-SA-2020SA233428

PATIENT
  Age: 54 Year
  Sex: Male

DRUGS (1)
  1. FABRAZYME [Suspect]
     Active Substance: AGALSIDASE BETA
     Indication: Fabry^s disease
     Dosage: UNK UNK, QOW
     Route: 042
     Dates: start: 20200318, end: 20210325

REACTIONS (3)
  - General physical health deterioration [Fatal]
  - Dialysis [Unknown]
  - Mitral valve replacement [Unknown]

NARRATIVE: CASE EVENT DATE: 20210427
